FAERS Safety Report 4537087-1 (Version None)
Quarter: 2004Q4

REPORT INFORMATION
  Report Type: 
  Country: None (occurrence: None)
  Receive Date: 20041221
  Receipt Date: 20041215
  Transmission Date: 20050328
  Serious: Yes (Hospitalization)
  Sender: FDA-Public Use
  Company Number: FABR-10623

PATIENT
  Age: 54 Year
  Sex: Male
  Weight: 109 kg

DRUGS (8)
  1. FABRAZYME [Suspect]
     Indication: FABRY'S DISEASE
     Dosage: 105 MG Q2WKS IV
     Route: 042
     Dates: start: 20040205, end: 20040318
  2. GENGRAF [Concomitant]
  3. CELLCEPT [Concomitant]
  4. FOLTX [Concomitant]
  5. PREDNISONE [Concomitant]
  6. ALLOPURINOL [Concomitant]
  7. VASOTEC [Concomitant]
  8. COUMADIN [Concomitant]

REACTIONS (12)
  - ABASIA [None]
  - ARTHRALGIA [None]
  - ARTHRITIS [None]
  - ASEPTIC NECROSIS BONE [None]
  - DISCOMFORT [None]
  - DYSSTASIA [None]
  - HIP FRACTURE [None]
  - INTERVERTEBRAL DISC DEGENERATION [None]
  - PAIN [None]
  - PAIN IN EXTREMITY [None]
  - PHLEBOTHROMBOSIS [None]
  - STRESS FRACTURE [None]
